FAERS Safety Report 7509943-3 (Version None)
Quarter: 2011Q2

REPORT INFORMATION
  Report Type: 
  Country: None (occurrence: None)
  Receive Date: 20110527
  Receipt Date: 20110523
  Transmission Date: 20111010
  Serious: Yes (Death)
  Sender: FDA-Public Use
  Company Number: AU-ASTRAZENECA-2011SE31113

PATIENT
  Age: 27473 Day
  Sex: Male

DRUGS (1)
  1. ZOLADEX [Suspect]
     Route: 058
     Dates: start: 20101201, end: 20110301

REACTIONS (3)
  - FALL [None]
  - BRAIN INJURY [None]
  - CEREBROVASCULAR ACCIDENT [None]
